FAERS Safety Report 4703629-6 (Version None)
Quarter: 2005Q2

REPORT INFORMATION
  Report Type: 
  Country: None (occurrence: None)
  Receive Date: 20050628
  Receipt Date: 20050620
  Transmission Date: 20051028
  Serious: Yes (Other)
  Sender: FDA-Public Use
  Company Number: 2005088726

PATIENT
  Age: 59 Year
  Sex: Female
  Weight: 86.1834 kg

DRUGS (8)
  1. BEXTRA [Suspect]
     Indication: ILL-DEFINED DISORDER
     Dosage: 20 MG, AS NECESSARY, ORAL
     Route: 048
     Dates: start: 20040901
  2. CELEBREX [Suspect]
     Indication: ILL-DEFINED DISORDER
     Dosage: 1IN 1 D, ORAL
     Route: 048
     Dates: start: 20040101, end: 20040101
  3. PLAVIX [Concomitant]
  4. DYAZIDE [Concomitant]
  5. PRAVACHOL [Concomitant]
  6. VALSARTAN [Concomitant]
  7. ALPHAGAN [Concomitant]
  8. PRED-FORTE (PREDNISOLONE ACETATE) [Concomitant]

REACTIONS (8)
  - CONTUSION [None]
  - DRUG INEFFECTIVE [None]
  - EXOSTOSIS [None]
  - MALAISE [None]
  - MUSCULAR DYSTROPHY [None]
  - NAUSEA [None]
  - ROAD TRAFFIC ACCIDENT [None]
  - SPINAL COMPRESSION FRACTURE [None]
